FAERS Safety Report 6571264-3 (Version None)
Quarter: 2010Q1

REPORT INFORMATION
  Report Type: 
  Country: None (occurrence: None)
  Receive Date: 20100129
  Receipt Date: 20090522
  Transmission Date: 20100710
  Serious: Yes (Other)
  Sender: FDA-Public Use
  Company Number: JP20090014

PATIENT
  Age: 83 Year
  Sex: Male

DRUGS (1)
  1. OXILAN-300 [Suspect]
     Indication: COMPUTERISED TOMOGRAM
     Dosage: INTRA-VEINOUS
     Dates: start: 20090518, end: 20090518

REACTIONS (2)
  - ANAPHYLACTIC REACTION [None]
  - OXYGEN SATURATION DECREASED [None]
